FAERS Safety Report 8589397-9 (Version None)
Quarter: 2012Q3

REPORT INFORMATION
  Report Type: 
  Country: None (occurrence: None)
  Receive Date: 20120813
  Receipt Date: 20120803
  Transmission Date: 20120928
  Serious: Yes (Hospitalization)
  Sender: FDA-Public Use
  Company Number: US-SANOFI-AVENTIS-2012SA053739

PATIENT
  Age: 70 Year
  Sex: Female
  Weight: 70.9 kg

DRUGS (12)
  1. CETUXIMAB [Suspect]
     Route: 065
     Dates: end: 20050510
  2. ATENOLOL [Concomitant]
  3. CETUXIMAB [Suspect]
     Dosage: WEEK 1
     Route: 065
     Dates: start: 20050330
  4. CYTOMEL [Concomitant]
  5. MORPHINE SULFATE [Concomitant]
  6. DERMOPLAST [Suspect]
     Indication: NECK PAIN
     Route: 065
     Dates: start: 20050523
  7. ALLEGRA [Concomitant]
  8. LEVAQUIN [Concomitant]
  9. THERAPEUTIC RADIOPHARMACEUTICALS [Suspect]
     Dosage: TOTAL DOSE: 60 GY, NUMBER OF FRACTIONS: 30
     Route: 065
     Dates: start: 20050330, end: 20050513
  10. CELEBREX [Concomitant]
  11. DOCETAXEL [Suspect]
     Dosage: 15 MG/M2; WEEKS 2 THROUGH 7
     Route: 065
     Dates: start: 20050330, end: 20050510
  12. COLACE [Concomitant]

REACTIONS (7)
  - RECALL PHENOMENON [None]
  - THERMAL BURN [None]
  - STOMATITIS [None]
  - PAIN [None]
  - ODYNOPHAGIA [None]
  - RADIATION INJURY [None]
  - ORAL PAIN [None]
